FAERS Safety Report 20435075 (Version 2)
Quarter: 2022Q2

REPORT INFORMATION
  Report Type: Spontaneous
  Country: HU (occurrence: HU)
  Receive Date: 20220206
  Receipt Date: 20220527
  Transmission Date: 20220721
  Serious: Yes (Other)
  Sender: FDA-Public Use
  Company Number: HU-BRISTOL-MYERS SQUIBB COMPANY-BMS-2022-016007

PATIENT
  Age: 78 Year
  Sex: Male

DRUGS (1)
  1. ELIQUIS [Suspect]
     Active Substance: APIXABAN
     Indication: Product used for unknown indication
     Dosage: 2.5 MILLIGRAM, BID
     Route: 065
     Dates: start: 202104

REACTIONS (6)
  - Skin necrosis [Unknown]
  - Pruritus [Unknown]
  - Haematoma [Unknown]
  - Erythema [Unknown]
  - Rash macular [Unknown]
  - Skin mass [Unknown]

NARRATIVE: CASE EVENT DATE: 20210501
